FAERS Safety Report 7742855-9 (Version None)
Quarter: 2011Q3

REPORT INFORMATION
  Report Type: 
  Country: None (occurrence: None)
  Receive Date: 20110906
  Receipt Date: 20110826
  Transmission Date: 20111222
  Serious: Yes (Other)
  Sender: FDA-Public Use
  Company Number: 2011SP040736

PATIENT
  Age: 56 Year
  Sex: Male

DRUGS (9)
  1. MIRTAZAPINE [Suspect]
     Indication: DEPRESSION
     Dosage: 15 MG;QD;PO ; 30 MG;QD;PO ; 15 MG;QD;PO
     Route: 048
     Dates: start: 20100806, end: 20100823
  2. MIRTAZAPINE [Suspect]
     Indication: DEPRESSION
     Dosage: 15 MG;QD;PO ; 30 MG;QD;PO ; 15 MG;QD;PO
     Route: 048
     Dates: start: 20100824, end: 20100903
  3. MIRTAZAPINE [Suspect]
     Indication: DEPRESSION
     Dosage: 15 MG;QD;PO ; 30 MG;QD;PO ; 15 MG;QD;PO
     Route: 048
     Dates: start: 20100904
  4. DIAZEPAM [Suspect]
     Indication: DEPRESSION
     Dosage: PO
     Route: 048
  5. TRAVELMIN /00517301/ [Concomitant]
  6. ETHYL LOFLAZEPATE (ETHYL LOFLAZEPATE) [Suspect]
     Indication: DEPRESSION
     Dosage: 2 MG;QD;PO ; 2 MG;QD;PO
     Route: 048
     Dates: start: 20100806, end: 20100823
  7. ETHYL LOFLAZEPATE (ETHYL LOFLAZEPATE) [Suspect]
     Indication: DEPRESSION
     Dosage: 2 MG;QD;PO ; 2 MG;QD;PO
     Route: 048
     Dates: start: 20100824, end: 20100906
  8. LORAZEPAM [Suspect]
     Indication: DEPRESSION
     Dosage: 1 MG;QD;PO ; 3 MG;QD;PO
     Route: 048
     Dates: start: 20100806, end: 20100906
  9. LORAZEPAM [Suspect]
     Indication: DEPRESSION
     Dosage: 1 MG;QD;PO ; 3 MG;QD;PO
     Route: 048
     Dates: start: 20100907

REACTIONS (4)
  - IRRITABILITY [None]
  - ANGER [None]
  - AGGRESSION [None]
  - SOMNOLENCE [None]
